FAERS Safety Report 16535475 (Version 1)
Quarter: 2019Q3

REPORT INFORMATION
  Report Type: Spontaneous
  Country: US (occurrence: US)
  Receive Date: 20190705
  Receipt Date: 20190705
  Transmission Date: 20191004
  Serious: No
  Sender: FDA-Public Use
  Company Number: US-PFIZER INC-2019282928

PATIENT
  Age: 51 Year
  Sex: Female
  Weight: 122.4 kg

DRUGS (3)
  1. GABAPENTIN. [Suspect]
     Active Substance: GABAPENTIN
     Indication: SLEEP DISORDER
     Dosage: 2700 MG, 1X/DAY [SHE WAS TAKING 9 A DAY AS PRESCRIBED, SHE WAS DOING ONCE A DAY]
  2. GABAPENTIN. [Suspect]
     Active Substance: GABAPENTIN
     Indication: NERVE INJURY
     Dosage: 900 MG, DAILY [300MG 1 TABLET BY MOUTH IN THE MORNING AND 2 TABLETS AT BEDTIME]
     Route: 048
  3. GABAPENTIN. [Suspect]
     Active Substance: GABAPENTIN
     Dosage: 300 MG, 1X/DAY

REACTIONS (2)
  - Off label use [Unknown]
  - Drug ineffective for unapproved indication [Unknown]
